FAERS Safety Report 5644249-9 (Version None)
Quarter: 2008Q1

REPORT INFORMATION
  Report Type: 
  Country: None (occurrence: None)
  Receive Date: 20080227
  Receipt Date: 20080227
  Transmission Date: 20080703
  Serious: Yes (Death)
  Sender: FDA-Public Use
  Company Number: None

PATIENT
  Age: 62 Year
  Sex: Male
  Weight: 68.0396 kg

DRUGS (2)
  1. CHANTIX [Suspect]
     Indication: SMOKING CESSATION THERAPY
     Dosage: 0.5 AND 1 MG START PK. THEN 2 MO PO
     Route: 048
     Dates: start: 20061205, end: 20070205
  2. GABAPENTIN [Suspect]
     Indication: POST HERPETIC NEURALGIA
     Dosage: 600MG TID PO
     Route: 048
     Dates: start: 20031101, end: 20080117

REACTIONS (2)
  - COMPLETED SUICIDE [None]
  - DEPRESSION [None]
